FAERS Safety Report 9272746 (Version 1)
Quarter: 2013Q2

REPORT INFORMATION
  Report Type: Spontaneous
  Country: NO (occurrence: NO)
  Receive Date: 20130506
  Receipt Date: 20130506
  Transmission Date: 20140414
  Serious: Yes (Life-Threatening, Hospitalization)
  Sender: FDA-Public Use
  Company Number: NO-BRISTOL-MYERS SQUIBB COMPANY-18831511

PATIENT
  Age: 58 Year
  Sex: Male

DRUGS (9)
  1. BYETTA [Suspect]
     Indication: DIABETES MELLITUS
     Dates: start: 20100617, end: 20120210
  2. JANUVIA [Suspect]
     Indication: DIABETES MELLITUS
     Dates: start: 20100617, end: 20120210
  3. VICTOZA [Suspect]
     Indication: DIABETES MELLITUS
     Dates: start: 20120210
  4. ALBYL-E [Concomitant]
     Indication: PROPHYLAXIS
  5. GLIMEPIRIDE [Concomitant]
     Indication: DIABETES MELLITUS
  6. ATACAND PLUS [Concomitant]
     Indication: HYPERTENSION
  7. METOPROLOL [Concomitant]
     Indication: HYPERTENSION
  8. ADALAT OROS [Concomitant]
     Indication: HYPERTENSION
  9. SIMVASTATIN [Concomitant]
     Indication: HYPERCHOLESTEROLAEMIA

REACTIONS (1)
  - Hepatic failure [Not Recovered/Not Resolved]
